FAERS Safety Report 10075318 (Version 1)
Quarter: 2014Q2

REPORT INFORMATION
  Report Type: Spontaneous
  Country: US (occurrence: US)
  Receive Date: 20140414
  Receipt Date: 20140414
  Transmission Date: 20141212
  Serious: No
  Sender: FDA-Public Use
  Company Number: US-BIOGENIDEC-2014BI030929

PATIENT
  Age: 59 Year
  Sex: Male

DRUGS (19)
  1. TECFIDERA [Suspect]
     Indication: MULTIPLE SCLEROSIS
     Route: 048
     Dates: start: 2014
  2. TYSABRI [Concomitant]
     Dates: start: 2004
  3. AMPYRA [Concomitant]
     Indication: GAIT DISTURBANCE
     Route: 048
     Dates: end: 201102
  4. ZANAFLEX [Concomitant]
     Indication: PRODUCT USED FOR UNKNOWN INDICATION
  5. VENTOLIN HFA AER [Concomitant]
  6. LASIX [Concomitant]
  7. AZELASTINE SPR 0.1% [Concomitant]
  8. MORPHINE SUL [Concomitant]
  9. NEURONTIN [Concomitant]
  10. BACLOFEN [Concomitant]
  11. PRILOSEC POW [Concomitant]
  12. VICODIN TAB 5-500 MG [Concomitant]
  13. PROVIGIL [Concomitant]
  14. VITAMIN D-3 [Concomitant]
  15. FLUTICASONE SPR [Concomitant]
  16. CLONAZEPAM [Concomitant]
  17. VENLAFAXINE [Concomitant]
  18. GLUCOSAMINE [Concomitant]
  19. LIPITOR [Concomitant]

REACTIONS (3)
  - Depression suicidal [Recovered/Resolved]
  - Wheelchair user [Recovered/Resolved]
  - Flushing [Not Recovered/Not Resolved]
